FAERS Safety Report 9447606 (Version 1)
Quarter: 2013Q3

REPORT INFORMATION
  Report Type: Spontaneous
  Country: US (occurrence: None)
  Receive Date: 20130805
  Receipt Date: 20130805
  Transmission Date: 20140515
  Serious: Yes (Hospitalization, Other)
  Sender: FDA-Public Use
  Company Number: DAV-AE-PYR-13-04

PATIENT
  Age: 20 Year
  Sex: Male

DRUGS (4)
  1. PYRAZINAMIDE [Suspect]
     Indication: PULMONARY TUBERCULOSIS
  2. RIFAMPICIN [Concomitant]
  3. ISONIAZID [Concomitant]
  4. ETHAMBUTOL [Concomitant]

REACTIONS (4)
  - Mitochondrial neurogastrointestinal encephalopathy [None]
  - Condition aggravated [None]
  - Demyelinating polyneuropathy [None]
  - Haemoglobin decreased [None]
